FAERS Safety Report 9410797 (Version 2)
Quarter: 2013Q3

REPORT INFORMATION
  Report Type: Spontaneous
  Country: DE (occurrence: DE)
  Receive Date: 20130719
  Receipt Date: 20130802
  Transmission Date: 20140515
  Serious: Yes (Hospitalization)
  Sender: FDA-Public Use
  Company Number: DE-VERTEX PHARMACEUTICALS INC-2013-005628

PATIENT
  Age: 50 Year
  Sex: Female

DRUGS (6)
  1. INCIVO [Suspect]
     Indication: CHRONIC HEPATITIS C
     Dosage: 2-2-2
     Route: 048
  2. PEGASYS [Suspect]
     Indication: CHRONIC HEPATITIS C
     Dosage: DOSAGE FORM: UNSPECIFIED
     Route: 058
     Dates: start: 20121011
  3. COPEGUS [Suspect]
     Indication: CHRONIC HEPATITIS C
     Dosage: DOSAGE FORM: UNSPECIFIED
  4. COPEGUS [Suspect]
     Dosage: DOSAGE FORM: UNSPECIFIED
     Route: 065
  5. COPEGUS [Suspect]
     Dosage: DOSAGE FORM: UNSPECIFIED
     Route: 065
  6. COPEGUS [Suspect]
     Dosage: DOSAGE FORM: UNSPECIFIED, 1-0-1
     Route: 065

REACTIONS (2)
  - Pancytopenia [Unknown]
  - Hypercholesterolaemia [Unknown]
